FAERS Safety Report 7916965-7 (Version None)
Quarter: 2011Q4

REPORT INFORMATION
  Report Type: 
  Country: None (occurrence: None)
  Receive Date: 20111116
  Receipt Date: 20111116
  Transmission Date: 20120403
  Serious: Yes (Other)
  Sender: FDA-Public Use
  Company Number: None

PATIENT
  Age: 44 Year
  Sex: Female
  Weight: 56.245 kg

DRUGS (3)
  1. CYMBALTA [Suspect]
     Indication: FIBROMYALGIA
     Dosage: 30MG
     Dates: start: 20110505, end: 20111031
  2. CYMBALTA [Concomitant]
     Indication: BACK PAIN
  3. LISINOPRIL [Concomitant]
     Route: 048

REACTIONS (3)
  - DRUG WITHDRAWAL SYNDROME [None]
  - CARDIOMEGALY [None]
  - HYPERTENSION [None]
